FAERS Safety Report 19742550 (Version 6)
Quarter: 2025Q1

REPORT INFORMATION
  Report Type: Spontaneous
  Country: CA (occurrence: CA)
  Receive Date: 20210824
  Receipt Date: 20250327
  Transmission Date: 20250409
  Serious: Yes (Death, Life-Threatening, Hospitalization, Disabling, Other)
  Sender: TAKEDA
  Company Number: CA-TAKEDA-2021TUS052215

PATIENT
  Age: 59 Year
  Sex: Female
  Weight: 58 kg

DRUGS (354)
  1. PANTOPRAZOLE SODIUM [Suspect]
     Active Substance: PANTOPRAZOLE SODIUM
     Indication: Product used for unknown indication
  2. LANSOPRAZOLE [Suspect]
     Active Substance: LANSOPRAZOLE
     Indication: Product used for unknown indication
  3. CALCIUM CARBONATE [Suspect]
     Active Substance: CALCIUM CARBONATE
     Indication: Product used for unknown indication
  4. CALCIUM CARBONATE [Suspect]
     Active Substance: CALCIUM CARBONATE
  5. ACETAMINOPHEN [Suspect]
     Active Substance: ACETAMINOPHEN
     Indication: Product used for unknown indication
  6. METHOTREXATE [Suspect]
     Active Substance: METHOTREXATE
     Indication: Rheumatoid arthritis
     Dosage: 20 MILLIGRAM, QD
  7. METHOTREXATE [Suspect]
     Active Substance: METHOTREXATE
     Indication: Crohn^s disease
  8. METHOTREXATE [Suspect]
     Active Substance: METHOTREXATE
     Dosage: 25 MILLIGRAM, 1/WEEK
  9. METHOTREXATE [Suspect]
     Active Substance: METHOTREXATE
     Dosage: 25 MILLIGRAM, 1/WEEK
  10. METHOTREXATE [Suspect]
     Active Substance: METHOTREXATE
  11. METHOTREXATE [Suspect]
     Active Substance: METHOTREXATE
  12. METHOTREXATE [Suspect]
     Active Substance: METHOTREXATE
  13. METHOTREXATE [Suspect]
     Active Substance: METHOTREXATE
  14. METHOTREXATE [Suspect]
     Active Substance: METHOTREXATE
  15. METHOTREXATE [Suspect]
     Active Substance: METHOTREXATE
     Dosage: 20 MILLIGRAM, 1/WEEK
  16. METHOTREXATE [Suspect]
     Active Substance: METHOTREXATE
  17. METHOTREXATE [Suspect]
     Active Substance: METHOTREXATE
     Dosage: 20 MILLIGRAM, QD
  18. METHOTREXATE [Suspect]
     Active Substance: METHOTREXATE
     Dosage: 25 MILLIGRAM, QD
  19. ASACOL [Suspect]
     Active Substance: MESALAMINE
     Indication: Crohn^s disease
  20. RITUXIMAB [Suspect]
     Active Substance: RITUXIMAB
     Indication: Rheumatoid arthritis
  21. RITUXIMAB [Suspect]
     Active Substance: RITUXIMAB
  22. RITUXIMAB [Suspect]
     Active Substance: RITUXIMAB
  23. RITUXIMAB [Suspect]
     Active Substance: RITUXIMAB
  24. RITUXIMAB [Suspect]
     Active Substance: RITUXIMAB
  25. RITUXIMAB [Suspect]
     Active Substance: RITUXIMAB
  26. RITUXIMAB [Suspect]
     Active Substance: RITUXIMAB
  27. DIPHENHYDRAMINE [Suspect]
     Active Substance: DIPHENHYDRAMINE
     Indication: Product used for unknown indication
  28. HUMIRA [Suspect]
     Active Substance: ADALIMUMAB
     Indication: Rheumatoid arthritis
  29. HUMIRA [Suspect]
     Active Substance: ADALIMUMAB
  30. HUMIRA [Suspect]
     Active Substance: ADALIMUMAB
  31. HUMIRA [Suspect]
     Active Substance: ADALIMUMAB
  32. HUMIRA [Suspect]
     Active Substance: ADALIMUMAB
     Dosage: 400 MILLIGRAM, 1/WEEK
  33. LEFLUNOMIDE [Suspect]
     Active Substance: LEFLUNOMIDE
     Indication: Rheumatoid arthritis
     Dosage: 20 MILLIGRAM, QD
  34. LEFLUNOMIDE [Suspect]
     Active Substance: LEFLUNOMIDE
  35. LEFLUNOMIDE [Suspect]
     Active Substance: LEFLUNOMIDE
     Dosage: 20 MILLIGRAM, QD
  36. LEFLUNOMIDE [Suspect]
     Active Substance: LEFLUNOMIDE
  37. PREDNISONE [Suspect]
     Active Substance: PREDNISONE
     Indication: Rheumatoid arthritis
  38. PREDNISONE [Suspect]
     Active Substance: PREDNISONE
     Indication: Condition aggravated
  39. PREDNISONE [Suspect]
     Active Substance: PREDNISONE
     Indication: Disease progression
  40. PREDNISONE [Suspect]
     Active Substance: PREDNISONE
  41. ARAVA [Suspect]
     Active Substance: LEFLUNOMIDE
     Indication: Rheumatoid arthritis
  42. ARAVA [Suspect]
     Active Substance: LEFLUNOMIDE
     Dosage: 10 MILLIGRAM, QD
  43. ARAVA [Suspect]
     Active Substance: LEFLUNOMIDE
     Dosage: 20 MILLIGRAM, QD
  44. ARAVA [Suspect]
     Active Substance: LEFLUNOMIDE
  45. ARAVA [Suspect]
     Active Substance: LEFLUNOMIDE
  46. ARAVA [Suspect]
     Active Substance: LEFLUNOMIDE
  47. ARAVA [Suspect]
     Active Substance: LEFLUNOMIDE
  48. ARAVA [Suspect]
     Active Substance: LEFLUNOMIDE
  49. AZATHIOPRINE [Suspect]
     Active Substance: AZATHIOPRINE
     Indication: Product used for unknown indication
  50. CETIRIZINE HYDROCHLORIDE [Suspect]
     Active Substance: CETIRIZINE HYDROCHLORIDE
     Indication: Rheumatoid arthritis
  51. CETIRIZINE HYDROCHLORIDE [Suspect]
     Active Substance: CETIRIZINE HYDROCHLORIDE
  52. CIMZIA [Suspect]
     Active Substance: CERTOLIZUMAB PEGOL
     Indication: Rheumatoid arthritis
  53. CIMZIA [Suspect]
     Active Substance: CERTOLIZUMAB PEGOL
     Indication: Psoriasis
  54. CIMZIA [Suspect]
     Active Substance: CERTOLIZUMAB PEGOL
  55. CIMZIA [Suspect]
     Active Substance: CERTOLIZUMAB PEGOL
  56. CIMZIA [Suspect]
     Active Substance: CERTOLIZUMAB PEGOL
  57. CIMZIA [Suspect]
     Active Substance: CERTOLIZUMAB PEGOL
     Indication: Rheumatoid arthritis
  58. CIMZIA [Suspect]
     Active Substance: CERTOLIZUMAB PEGOL
     Indication: Psoriasis
  59. CIMZIA [Suspect]
     Active Substance: CERTOLIZUMAB PEGOL
  60. CIMZIA [Suspect]
     Active Substance: CERTOLIZUMAB PEGOL
  61. CIMZIA [Suspect]
     Active Substance: CERTOLIZUMAB PEGOL
  62. CIMZIA [Suspect]
     Active Substance: CERTOLIZUMAB PEGOL
  63. CORTISONE ACETATE [Suspect]
     Active Substance: CORTISONE ACETATE
     Indication: Rheumatoid arthritis
  64. CORTISONE ACETATE [Suspect]
     Active Substance: CORTISONE ACETATE
     Route: 061
  65. CORTISONE ACETATE [Suspect]
     Active Substance: CORTISONE ACETATE
     Dosage: 25 MILLIGRAM, QD
     Route: 061
  66. CORTISONE ACETATE [Suspect]
     Active Substance: CORTISONE ACETATE
     Dosage: 25 MILLIGRAM, QD
  67. CORTISONE ACETATE [Suspect]
     Active Substance: CORTISONE ACETATE
  68. CORTISONE ACETATE [Suspect]
     Active Substance: CORTISONE ACETATE
     Route: 061
  69. CORTISONE ACETATE [Suspect]
     Active Substance: CORTISONE ACETATE
     Route: 061
  70. CORTISONE ACETATE [Suspect]
     Active Substance: CORTISONE ACETATE
     Route: 061
  71. DESOXIMETASONE [Suspect]
     Active Substance: DESOXIMETASONE
     Indication: Rheumatoid arthritis
  72. DESOXIMETASONE [Suspect]
     Active Substance: DESOXIMETASONE
     Route: 061
  73. DESOXIMETASONE [Suspect]
     Active Substance: DESOXIMETASONE
  74. DESOXIMETASONE [Suspect]
     Active Substance: DESOXIMETASONE
  75. DESOXIMETASONE [Suspect]
     Active Substance: DESOXIMETASONE
  76. DESOXIMETASONE [Suspect]
     Active Substance: DESOXIMETASONE
  77. DESOXIMETASONE [Suspect]
     Active Substance: DESOXIMETASONE
     Route: 061
  78. ERELZI [Suspect]
     Active Substance: ETANERCEPT-SZZS
     Indication: Rheumatoid arthritis
     Dosage: 50 MILLIGRAM, 1/WEEK
  79. ERELZI [Suspect]
     Active Substance: ETANERCEPT-SZZS
  80. ERELZI [Suspect]
     Active Substance: ETANERCEPT-SZZS
  81. ERELZI [Suspect]
     Active Substance: ETANERCEPT-SZZS
  82. ERELZI [Suspect]
     Active Substance: ETANERCEPT-SZZS
  83. ERELZI [Suspect]
     Active Substance: ETANERCEPT-SZZS
  84. FOLIC ACID [Suspect]
     Active Substance: FOLIC ACID
     Indication: Rheumatoid arthritis
  85. FOLIC ACID [Suspect]
     Active Substance: FOLIC ACID
  86. FOLIC ACID [Suspect]
     Active Substance: FOLIC ACID
  87. FOLIC ACID [Suspect]
     Active Substance: FOLIC ACID
  88. FOLIC ACID [Suspect]
     Active Substance: FOLIC ACID
  89. FOLIC ACID [Suspect]
     Active Substance: FOLIC ACID
  90. FOLIC ACID [Suspect]
     Active Substance: FOLIC ACID
  91. FOSAMAX [Suspect]
     Active Substance: ALENDRONATE SODIUM
     Indication: Rheumatoid arthritis
  92. FOSAMAX [Suspect]
     Active Substance: ALENDRONATE SODIUM
  93. FOSAMAX [Suspect]
     Active Substance: ALENDRONATE SODIUM
  94. FOSAMAX [Suspect]
     Active Substance: ALENDRONATE SODIUM
  95. GOLIMUMAB [Suspect]
     Active Substance: GOLIMUMAB
     Indication: Rheumatoid arthritis
  96. GOLIMUMAB [Suspect]
     Active Substance: GOLIMUMAB
  97. HYDROXYCHLOROQUINE [Suspect]
     Active Substance: HYDROXYCHLOROQUINE
     Indication: Rheumatoid arthritis
  98. HYDROXYCHLOROQUINE [Suspect]
     Active Substance: HYDROXYCHLOROQUINE
     Indication: Systemic lupus erythematosus
  99. HYDROXYCHLOROQUINE [Suspect]
     Active Substance: HYDROXYCHLOROQUINE
  100. HYDROXYCHLOROQUINE [Suspect]
     Active Substance: HYDROXYCHLOROQUINE
  101. HYDROXYCHLOROQUINE [Suspect]
     Active Substance: HYDROXYCHLOROQUINE
  102. HYDROXYCHLOROQUINE [Suspect]
     Active Substance: HYDROXYCHLOROQUINE
  103. HYDROXYCHLOROQUINE [Suspect]
     Active Substance: HYDROXYCHLOROQUINE
  104. HYDROXYCHLOROQUINE [Suspect]
     Active Substance: HYDROXYCHLOROQUINE
  105. HYDROXYCHLOROQUINE [Suspect]
     Active Substance: HYDROXYCHLOROQUINE
     Dosage: 400 MILLIGRAM, QD
  106. HYDROXYCHLOROQUINE [Suspect]
     Active Substance: HYDROXYCHLOROQUINE
     Dosage: 40 MILLIGRAM, QD
  107. HYDROXYCHLOROQUINE [Suspect]
     Active Substance: HYDROXYCHLOROQUINE
     Dosage: 420 MILLIGRAM, QD
  108. HYDROXYCHLOROQUINE [Suspect]
     Active Substance: HYDROXYCHLOROQUINE
  109. HYDROXYCHLOROQUINE [Suspect]
     Active Substance: HYDROXYCHLOROQUINE
  110. HYDROXYCHLOROQUINE SULFATE [Suspect]
     Active Substance: HYDROXYCHLOROQUINE SULFATE
     Indication: Rheumatoid arthritis
  111. HYDROXYCHLOROQUINE SULFATE [Suspect]
     Active Substance: HYDROXYCHLOROQUINE SULFATE
     Dosage: 400 MILLIGRAM, QD
  112. HYDROXYCHLOROQUINE SULFATE [Suspect]
     Active Substance: HYDROXYCHLOROQUINE SULFATE
     Dosage: 400 MILLIGRAM, QD
  113. HYDROXYCHLOROQUINE SULFATE [Suspect]
     Active Substance: HYDROXYCHLOROQUINE SULFATE
  114. HYDROXYCHLOROQUINE SULFATE [Suspect]
     Active Substance: HYDROXYCHLOROQUINE SULFATE
     Dosage: 420 MILLIGRAM, QD
  115. HYDROXYCHLOROQUINE SULFATE [Suspect]
     Active Substance: HYDROXYCHLOROQUINE SULFATE
     Dosage: 40 MILLIGRAM, QD
  116. INFLIXIMAB [Suspect]
     Active Substance: INFLIXIMAB
     Indication: Crohn^s disease
  117. INFLIXIMAB [Suspect]
     Active Substance: INFLIXIMAB
     Indication: Rheumatoid arthritis
  118. INFLIXIMAB [Suspect]
     Active Substance: INFLIXIMAB
  119. INFLIXIMAB [Suspect]
     Active Substance: INFLIXIMAB
  120. KEVZARA [Suspect]
     Active Substance: SARILUMAB
     Indication: Rheumatoid arthritis
  121. LEFLUNOMIDE [Suspect]
     Active Substance: LEFLUNOMIDE
     Indication: Rheumatoid arthritis
     Dosage: 20 MILLIGRAM, QD
  122. LEFLUNOMIDE [Suspect]
     Active Substance: LEFLUNOMIDE
     Dosage: 20 MILLIGRAM, QD
  123. LEFLUNOMIDE [Suspect]
     Active Substance: LEFLUNOMIDE
     Dosage: 10 MILLIGRAM, QD
  124. LEFLUNOMIDE [Suspect]
     Active Substance: LEFLUNOMIDE
  125. LEFLUNOMIDE [Suspect]
     Active Substance: LEFLUNOMIDE
  126. LEFLUNOMIDE [Suspect]
     Active Substance: LEFLUNOMIDE
     Dosage: 20 MILLIGRAM, QD
  127. LEFLUNOMIDE [Suspect]
     Active Substance: LEFLUNOMIDE
     Dosage: 20 MILLIGRAM, QD
  128. MINOCYCLINE [Suspect]
     Active Substance: MINOCYCLINE HYDROCHLORIDE
     Indication: Product used for unknown indication
  129. MINOCYCLINE [Suspect]
     Active Substance: MINOCYCLINE HYDROCHLORIDE
     Dosage: 400 MILLIGRAM, QD
  130. MINOCYCLINE [Suspect]
     Active Substance: MINOCYCLINE HYDROCHLORIDE
     Dosage: 400 MILLIGRAM, QD
  131. MINOCYCLINE [Suspect]
     Active Substance: MINOCYCLINE HYDROCHLORIDE
  132. MORPHINE SULFATE [Suspect]
     Active Substance: MORPHINE SULFATE
     Indication: Product used for unknown indication
  133. MORPHINE SULFATE [Suspect]
     Active Substance: MORPHINE SULFATE
  134. ORENCIA [Suspect]
     Active Substance: ABATACEPT
     Indication: Rheumatoid arthritis
  135. ORENCIA [Suspect]
     Active Substance: ABATACEPT
  136. ORENCIA [Suspect]
     Active Substance: ABATACEPT
  137. ORENCIA [Suspect]
     Active Substance: ABATACEPT
  138. OTEZLA [Suspect]
     Active Substance: APREMILAST
     Indication: Product used for unknown indication
  139. OTEZLA [Suspect]
     Active Substance: APREMILAST
     Dosage: 3 MILLIGRAM, BID
  140. OTEZLA [Suspect]
     Active Substance: APREMILAST
     Dosage: 3 MILLIGRAM, QD
  141. OTEZLA [Suspect]
     Active Substance: APREMILAST
  142. OTEZLA [Suspect]
     Active Substance: APREMILAST
  143. PHTHALYLSULFATHIAZOLE [Suspect]
     Active Substance: PHTHALYLSULFATHIAZOLE
     Indication: Product used for unknown indication
  144. PHTHALYLSULFATHIAZOLE [Suspect]
     Active Substance: PHTHALYLSULFATHIAZOLE
  145. PHTHALYLSULFATHIAZOLE [Suspect]
     Active Substance: PHTHALYLSULFATHIAZOLE
  146. PHTHALYLSULFATHIAZOLE [Suspect]
     Active Substance: PHTHALYLSULFATHIAZOLE
  147. PHTHALYLSULFATHIAZOLE [Suspect]
     Active Substance: PHTHALYLSULFATHIAZOLE
  148. PHTHALYLSULFATHIAZOLE [Suspect]
     Active Substance: PHTHALYLSULFATHIAZOLE
     Dosage: 1000 MILLIGRAM, BID
  149. PLAQUENIL [Suspect]
     Active Substance: HYDROXYCHLOROQUINE SULFATE
     Indication: Rheumatoid arthritis
     Dosage: 400 MILLIGRAM, QD
  150. PLAQUENIL [Suspect]
     Active Substance: HYDROXYCHLOROQUINE SULFATE
     Indication: Systemic lupus erythematosus
  151. PLAQUENIL [Suspect]
     Active Substance: HYDROXYCHLOROQUINE SULFATE
  152. PREDNISONE [Suspect]
     Active Substance: PREDNISONE
     Indication: Arthralgia
  153. PREDNISONE [Suspect]
     Active Substance: PREDNISONE
     Indication: Rheumatoid arthritis
  154. PREDNISONE [Suspect]
     Active Substance: PREDNISONE
     Indication: Disease progression
  155. PREDNISONE [Suspect]
     Active Substance: PREDNISONE
  156. PREDNISONE [Suspect]
     Active Substance: PREDNISONE
  157. PREDNISONE [Suspect]
     Active Substance: PREDNISONE
  158. PSEUDOEPHEDRINE HYDROCHLORIDE [Suspect]
     Active Substance: PSEUDOEPHEDRINE HYDROCHLORIDE
     Indication: Rheumatoid arthritis
  159. PSEUDOEPHEDRINE HYDROCHLORIDE [Suspect]
     Active Substance: PSEUDOEPHEDRINE HYDROCHLORIDE
  160. PSEUDOEPHEDRINE HYDROCHLORIDE [Suspect]
     Active Substance: PSEUDOEPHEDRINE HYDROCHLORIDE
     Dosage: 10 MILLIGRAM, QD
  161. PSEUDOEPHEDRINE HYDROCHLORIDE [Suspect]
     Active Substance: PSEUDOEPHEDRINE HYDROCHLORIDE
  162. REMICADE [Suspect]
     Active Substance: INFLIXIMAB
     Indication: Rheumatoid arthritis
  163. REMICADE [Suspect]
     Active Substance: INFLIXIMAB
     Indication: Crohn^s disease
  164. REMICADE [Suspect]
     Active Substance: INFLIXIMAB
     Indication: Ankylosing spondylitis
  165. REMICADE [Suspect]
     Active Substance: INFLIXIMAB
  166. REMICADE [Suspect]
     Active Substance: INFLIXIMAB
  167. REMICADE [Suspect]
     Active Substance: INFLIXIMAB
  168. REMICADE [Suspect]
     Active Substance: INFLIXIMAB
  169. REMICADE [Suspect]
     Active Substance: INFLIXIMAB
  170. REMICADE [Suspect]
     Active Substance: INFLIXIMAB
  171. REMICADE [Suspect]
     Active Substance: INFLIXIMAB
  172. REMICADE [Suspect]
     Active Substance: INFLIXIMAB
  173. REMICADE [Suspect]
     Active Substance: INFLIXIMAB
     Indication: Rheumatoid arthritis
  174. REMICADE [Suspect]
     Active Substance: INFLIXIMAB
     Indication: Crohn^s disease
  175. REMICADE [Suspect]
     Active Substance: INFLIXIMAB
     Indication: Ankylosing spondylitis
  176. REMICADE [Suspect]
     Active Substance: INFLIXIMAB
  177. REMICADE [Suspect]
     Active Substance: INFLIXIMAB
  178. REMICADE [Suspect]
     Active Substance: INFLIXIMAB
  179. REMICADE [Suspect]
     Active Substance: INFLIXIMAB
  180. REMICADE [Suspect]
     Active Substance: INFLIXIMAB
  181. SIRUKUMAB [Suspect]
     Active Substance: SIRUKUMAB
     Indication: Product used for unknown indication
  182. SIRUKUMAB [Suspect]
     Active Substance: SIRUKUMAB
  183. SIMPONI [Suspect]
     Active Substance: GOLIMUMAB
     Indication: Rheumatoid arthritis
     Dosage: 50 MILLIGRAM, MONTHLY
  184. SIMPONI [Suspect]
     Active Substance: GOLIMUMAB
  185. SIMPONI [Suspect]
     Active Substance: GOLIMUMAB
     Dosage: 500 MILLIGRAM, MONTHLY
  186. SIMPONI [Suspect]
     Active Substance: GOLIMUMAB
  187. SULFASALAZINE [Suspect]
     Active Substance: SULFASALAZINE
     Indication: Rheumatoid arthritis
     Dosage: 1 GRAM, QD
  188. SULFASALAZINE [Suspect]
     Active Substance: SULFASALAZINE
     Dosage: 1 GRAM, BID
  189. SULFASALAZINE [Suspect]
     Active Substance: SULFASALAZINE
  190. SULFASALAZINE [Suspect]
     Active Substance: SULFASALAZINE
  191. SULFASALAZINE [Suspect]
     Active Substance: SULFASALAZINE
  192. SULFASALAZINE [Suspect]
     Active Substance: SULFASALAZINE
  193. SULFASALAZINE [Suspect]
     Active Substance: SULFASALAZINE
  194. SULFASALAZINE [Suspect]
     Active Substance: SULFASALAZINE
  195. SULFASALAZINE [Suspect]
     Active Substance: SULFASALAZINE
  196. SULFASALAZINE [Suspect]
     Active Substance: SULFASALAZINE
  197. SULFASALAZINE [Suspect]
     Active Substance: SULFASALAZINE
  198. SULFASALAZINE [Suspect]
     Active Substance: SULFASALAZINE
     Dosage: 1000 MILLIGRAM, QD
  199. SULFASALAZINE [Suspect]
     Active Substance: SULFASALAZINE
     Dosage: 1000 MILLIGRAM, BID
  200. SULFASALAZINE [Suspect]
     Active Substance: SULFASALAZINE
     Dosage: 1 MILLIGRAM, BID
  201. SULFASALAZINE [Suspect]
     Active Substance: SULFASALAZINE
  202. SULFASALAZINE [Suspect]
     Active Substance: SULFASALAZINE
  203. SULFASALAZINE [Suspect]
     Active Substance: SULFASALAZINE
  204. SULFASALAZINE [Suspect]
     Active Substance: SULFASALAZINE
     Dosage: 1 GRAM, QD
  205. SULFASALAZINE [Suspect]
     Active Substance: SULFASALAZINE
     Dosage: 2 MILLIGRAM, BID
  206. SULFASALAZINE [Suspect]
     Active Substance: SULFASALAZINE
  207. ACTEMRA [Suspect]
     Active Substance: TOCILIZUMAB
     Indication: Rheumatoid arthritis
  208. ACTEMRA [Suspect]
     Active Substance: TOCILIZUMAB
  209. ACTEMRA [Suspect]
     Active Substance: TOCILIZUMAB
  210. ACTEMRA [Suspect]
     Active Substance: TOCILIZUMAB
     Route: 061
  211. ACTEMRA [Suspect]
     Active Substance: TOCILIZUMAB
  212. ACTEMRA [Suspect]
     Active Substance: TOCILIZUMAB
  213. STELARA [Suspect]
     Active Substance: USTEKINUMAB
     Indication: Product used for unknown indication
  214. STELARA [Suspect]
     Active Substance: USTEKINUMAB
  215. STELARA [Suspect]
     Active Substance: USTEKINUMAB
     Dosage: 20 MILLIGRAM, QD
  216. COSENTYX [Suspect]
     Active Substance: SECUKINUMAB
     Indication: Psoriatic arthropathy
  217. COSENTYX [Suspect]
     Active Substance: SECUKINUMAB
  218. COSENTYX [Suspect]
     Active Substance: SECUKINUMAB
  219. DICLOFENAC POTASSIUM [Suspect]
     Active Substance: DICLOFENAC POTASSIUM
     Indication: Product used for unknown indication
  220. DICLOFENAC SODIUM [Suspect]
     Active Substance: DICLOFENAC SODIUM
     Indication: Rheumatoid arthritis
  221. DICLOFENAC SODIUM [Suspect]
     Active Substance: DICLOFENAC SODIUM
  222. DICLOFENAC SODIUM [Suspect]
     Active Substance: DICLOFENAC SODIUM
     Route: 061
  223. DICLOFENAC SODIUM [Suspect]
     Active Substance: DICLOFENAC SODIUM
     Dosage: 50 MILLIGRAM, QD
  224. DICLOFENAC SODIUM [Suspect]
     Active Substance: DICLOFENAC SODIUM
  225. DICLOFENAC SODIUM [Suspect]
     Active Substance: DICLOFENAC SODIUM
  226. ALENDRONIC ACID [Suspect]
     Active Substance: ALENDRONIC ACID
     Indication: Rheumatoid arthritis
  227. ALENDRONIC ACID [Suspect]
     Active Substance: ALENDRONIC ACID
  228. ALENDRONIC ACID [Suspect]
     Active Substance: ALENDRONIC ACID
  229. ALENDRONIC ACID [Suspect]
     Active Substance: ALENDRONIC ACID
  230. CALCIUM GLUBIONATE [Suspect]
     Active Substance: CALCIUM GLUBIONATE
     Indication: Product used for unknown indication
  231. CALCIUM GLUBIONATE [Suspect]
     Active Substance: CALCIUM GLUBIONATE
  232. DOXYCYCLINE HYCLATE [Suspect]
     Active Substance: DOXYCYCLINE HYCLATE
     Indication: Product used for unknown indication
  233. ENBREL [Suspect]
     Active Substance: ETANERCEPT
     Indication: Rheumatoid arthritis
  234. ENBREL [Suspect]
     Active Substance: ETANERCEPT
     Dosage: 50 MILLIGRAM, 1/WEEK
  235. ENBREL [Suspect]
     Active Substance: ETANERCEPT
  236. ENBREL [Suspect]
     Active Substance: ETANERCEPT
  237. ENBREL [Suspect]
     Active Substance: ETANERCEPT
  238. ENBREL [Suspect]
     Active Substance: ETANERCEPT
  239. ENBREL [Suspect]
     Active Substance: ETANERCEPT
  240. ENBREL [Suspect]
     Active Substance: ETANERCEPT
  241. HYDROCORTISONE ACETATE [Suspect]
     Active Substance: HYDROCORTISONE ACETATE
     Indication: Rheumatoid arthritis
  242. QUETIAPINE FUMARATE [Suspect]
     Active Substance: QUETIAPINE FUMARATE
     Indication: Product used for unknown indication
  243. QUETIAPINE FUMARATE [Suspect]
     Active Substance: QUETIAPINE FUMARATE
  244. VITAMIN C [Suspect]
     Active Substance: ASCORBIC ACID
     Indication: Product used for unknown indication
  245. CETIRIZINE HYDROCHLORIDE\PSEUDOEPHEDRINE HYDROCHLORIDE [Suspect]
     Active Substance: CETIRIZINE HYDROCHLORIDE\PSEUDOEPHEDRINE HYDROCHLORIDE
     Indication: Product used for unknown indication
  246. CETIRIZINE HYDROCHLORIDE\PSEUDOEPHEDRINE HYDROCHLORIDE [Suspect]
     Active Substance: CETIRIZINE HYDROCHLORIDE\PSEUDOEPHEDRINE HYDROCHLORIDE
  247. CETIRIZINE HYDROCHLORIDE [Suspect]
     Active Substance: CETIRIZINE HYDROCHLORIDE
     Indication: Rheumatoid arthritis
  248. CETIRIZINE HYDROCHLORIDE [Suspect]
     Active Substance: CETIRIZINE HYDROCHLORIDE
  249. VITAMIN D3 [Suspect]
     Active Substance: CHOLECALCIFEROL
     Indication: Product used for unknown indication
  250. VITAMIN D3 [Suspect]
     Active Substance: CHOLECALCIFEROL
  251. VITAMIN D3 [Suspect]
     Active Substance: CHOLECALCIFEROL
  252. VITAMIN D3 [Suspect]
     Active Substance: CHOLECALCIFEROL
  253. ATIVAN [Suspect]
     Active Substance: LORAZEPAM
     Indication: Product used for unknown indication
  254. DIETARY SUPPLEMENT\MINERALS\VITAMINS [Suspect]
     Active Substance: DIETARY SUPPLEMENT\MINERALS\VITAMINS
     Indication: Product used for unknown indication
  255. CHLORHEXIDINE [Suspect]
     Active Substance: CHLORHEXIDINE
     Indication: Product used for unknown indication
  256. HYRIMOZ [Suspect]
     Active Substance: ADALIMUMAB-ADAZ
     Indication: Rheumatoid arthritis
  257. LEVOCETIRIZINE HYDROCHLORIDE [Suspect]
     Active Substance: LEVOCETIRIZINE HYDROCHLORIDE
     Indication: Product used for unknown indication
  258. ADALIMUMAB [Suspect]
     Active Substance: ADALIMUMAB
     Indication: Rheumatoid arthritis
  259. ADALIMUMAB [Suspect]
     Active Substance: ADALIMUMAB
  260. ADALIMUMAB [Suspect]
     Active Substance: ADALIMUMAB
  261. ADALIMUMAB [Suspect]
     Active Substance: ADALIMUMAB
  262. ADALIMUMAB [Suspect]
     Active Substance: ADALIMUMAB
  263. ALENDRONATE SODIUM [Suspect]
     Active Substance: ALENDRONATE SODIUM
     Indication: Rheumatoid arthritis
  264. ALENDRONATE SODIUM [Suspect]
     Active Substance: ALENDRONATE SODIUM
  265. ALENDRONATE SODIUM [Suspect]
     Active Substance: ALENDRONATE SODIUM
  266. ALENDRONIC ACID [Suspect]
     Active Substance: ALENDRONIC ACID
     Indication: Rheumatoid arthritis
  267. ALENDRONIC ACID [Suspect]
     Active Substance: ALENDRONIC ACID
  268. CERTOLIZUMAB PEGOL [Suspect]
     Active Substance: CERTOLIZUMAB PEGOL
     Indication: Rheumatoid arthritis
  269. CERTOLIZUMAB PEGOL [Suspect]
     Active Substance: CERTOLIZUMAB PEGOL
  270. CETIRIZINE HYDROCHLORIDE\PSEUDOEPHEDRINE HYDROCHLORIDE [Suspect]
     Active Substance: CETIRIZINE HYDROCHLORIDE\PSEUDOEPHEDRINE HYDROCHLORIDE
     Indication: Rheumatoid arthritis
  271. CORTISONE [Suspect]
     Active Substance: CORTISONE
     Indication: Rheumatoid arthritis
     Route: 061
  272. CORTISONE [Suspect]
     Active Substance: CORTISONE
  273. CORTISONE [Suspect]
     Active Substance: CORTISONE
  274. DOXYCYCLINE [Suspect]
     Active Substance: DOXYCYCLINE
     Indication: Product used for unknown indication
  275. ERGOCALCIFEROL [Suspect]
     Active Substance: ERGOCALCIFEROL
     Indication: Product used for unknown indication
  276. FOLIC ACID [Suspect]
     Active Substance: FOLIC ACID
     Indication: Rheumatoid arthritis
  277. FOLIC ACID [Suspect]
     Active Substance: FOLIC ACID
  278. FOLIC ACID [Suspect]
     Active Substance: FOLIC ACID
  279. FOLIC ACID [Suspect]
     Active Substance: FOLIC ACID
  280. FOLIC ACID [Suspect]
     Active Substance: FOLIC ACID
  281. FOLIC ACID [Suspect]
     Active Substance: FOLIC ACID
  282. FOLIC ACID [Suspect]
     Active Substance: FOLIC ACID
  283. FOLIC ACID [Suspect]
     Active Substance: FOLIC ACID
  284. ISOPROPYL ALCOHOL [Suspect]
     Active Substance: ISOPROPYL ALCOHOL
     Indication: Product used for unknown indication
     Route: 061
  285. METHYLPREDNISOLONE SODIUM SUCCINATE [Suspect]
     Active Substance: METHYLPREDNISOLONE SODIUM SUCCINATE
     Indication: Product used for unknown indication
  286. OXYCODONE TEREPHTHALATE [Suspect]
     Active Substance: OXYCODONE TEREPHTHALATE
     Indication: Product used for unknown indication
  287. PREDNISONE [Suspect]
     Active Substance: PREDNISONE
     Indication: Arthralgia
  288. PREDNISONE [Suspect]
     Active Substance: PREDNISONE
     Indication: Rheumatoid arthritis
  289. PREDNISONE [Suspect]
     Active Substance: PREDNISONE
     Indication: Disease progression
  290. PREDNISONE [Suspect]
     Active Substance: PREDNISONE
     Indication: Condition aggravated
  291. PREPARATION H NOS [Suspect]
     Active Substance: UNSPECIFIED INGREDIENT
     Indication: Product used for unknown indication
  292. PSEUDOEPHEDRINE HYDROCHLORIDE [Suspect]
     Active Substance: PSEUDOEPHEDRINE HYDROCHLORIDE
     Indication: Rheumatoid arthritis
  293. CETIRIZINE HYDROCHLORIDE [Suspect]
     Active Substance: CETIRIZINE HYDROCHLORIDE
     Indication: Rheumatoid arthritis
  294. CETIRIZINE HYDROCHLORIDE [Suspect]
     Active Substance: CETIRIZINE HYDROCHLORIDE
  295. CETIRIZINE HYDROCHLORIDE [Suspect]
     Active Substance: CETIRIZINE HYDROCHLORIDE
  296. CETIRIZINE HYDROCHLORIDE [Suspect]
     Active Substance: CETIRIZINE HYDROCHLORIDE
  297. CETIRIZINE HYDROCHLORIDE [Suspect]
     Active Substance: CETIRIZINE HYDROCHLORIDE
  298. CETIRIZINE HYDROCHLORIDE [Suspect]
     Active Substance: CETIRIZINE HYDROCHLORIDE
  299. CETIRIZINE HYDROCHLORIDE [Suspect]
     Active Substance: CETIRIZINE HYDROCHLORIDE
  300. REMICADE [Suspect]
     Active Substance: INFLIXIMAB
     Indication: Rheumatoid arthritis
  301. REMICADE [Suspect]
     Active Substance: INFLIXIMAB
     Indication: Crohn^s disease
  302. REMICADE [Suspect]
     Active Substance: INFLIXIMAB
     Indication: Ankylosing spondylitis
  303. REMICADE [Suspect]
     Active Substance: INFLIXIMAB
  304. REMICADE [Suspect]
     Active Substance: INFLIXIMAB
  305. TOCILIZUMAB [Suspect]
     Active Substance: TOCILIZUMAB
     Indication: Rheumatoid arthritis
  306. TOCILIZUMAB [Suspect]
     Active Substance: TOCILIZUMAB
  307. TOCILIZUMAB [Suspect]
     Active Substance: TOCILIZUMAB
  308. TOCILIZUMAB [Suspect]
     Active Substance: TOCILIZUMAB
  309. TOCILIZUMAB [Suspect]
     Active Substance: TOCILIZUMAB
  310. TOCILIZUMAB [Suspect]
     Active Substance: TOCILIZUMAB
  311. TOCILIZUMAB [Suspect]
     Active Substance: TOCILIZUMAB
  312. TOCILIZUMAB [Suspect]
     Active Substance: TOCILIZUMAB
     Route: 061
  313. TOFACITINIB CITRATE [Suspect]
     Active Substance: TOFACITINIB CITRATE
     Indication: Product used for unknown indication
  314. TOPICORT [Suspect]
     Active Substance: DESOXIMETASONE
     Indication: Rheumatoid arthritis
  315. TUMS [Suspect]
     Active Substance: CALCIUM CARBONATE
     Indication: Product used for unknown indication
  316. USTEKINUMAB [Suspect]
     Active Substance: USTEKINUMAB
     Indication: Crohn^s disease
  317. USTEKINUMAB [Suspect]
     Active Substance: USTEKINUMAB
     Dosage: 1 DOSAGE FORM, BID
  318. USTEKINUMAB [Suspect]
     Active Substance: USTEKINUMAB
  319. PREDNISONE [Suspect]
     Active Substance: PREDNISONE
     Indication: Rheumatoid arthritis
  320. XELJANZ [Suspect]
     Active Substance: TOFACITINIB CITRATE
     Indication: Rheumatoid arthritis
  321. XELJANZ [Suspect]
     Active Substance: TOFACITINIB CITRATE
     Dosage: 5 MILLIGRAM, QD
  322. XELJANZ [Suspect]
     Active Substance: TOFACITINIB CITRATE
  323. XELJANZ [Suspect]
     Active Substance: TOFACITINIB CITRATE
  324. XELJANZ [Suspect]
     Active Substance: TOFACITINIB CITRATE
  325. XELJANZ [Suspect]
     Active Substance: TOFACITINIB CITRATE
     Dosage: 5 MILLIGRAM, BID
  326. XELJANZ [Suspect]
     Active Substance: TOFACITINIB CITRATE
  327. XELJANZ [Suspect]
     Active Substance: TOFACITINIB CITRATE
     Dosage: 5 MILLIGRAM, BID
  328. XELJANZ [Suspect]
     Active Substance: TOFACITINIB CITRATE
     Dosage: 4 MILLIGRAM, BID
  329. XELJANZ [Suspect]
     Active Substance: TOFACITINIB CITRATE
  330. XELJANZ [Suspect]
     Active Substance: TOFACITINIB CITRATE
  331. SULFASALAZINE [Concomitant]
     Active Substance: SULFASALAZINE
     Indication: Product used for unknown indication
  332. BUPROPION [Concomitant]
     Active Substance: BUPROPION
     Indication: Product used for unknown indication
  333. BUPROPION HYDROCHLORIDE [Concomitant]
     Active Substance: BUPROPION HYDROCHLORIDE
     Indication: Product used for unknown indication
  334. HYDROMORPHONE HYDROCHLORIDE [Concomitant]
     Active Substance: HYDROMORPHONE HYDROCHLORIDE
     Indication: Product used for unknown indication
  335. DILAUDID [Concomitant]
     Active Substance: HYDROMORPHONE HYDROCHLORIDE
     Indication: Pain
  336. WELLBUTRIN [Concomitant]
     Active Substance: BUPROPION HYDROCHLORIDE
     Indication: Product used for unknown indication
  337. DICLOFENAC [Concomitant]
     Active Substance: DICLOFENAC
     Indication: Product used for unknown indication
  338. XELJANZ [Concomitant]
     Active Substance: TOFACITINIB CITRATE
     Indication: Rheumatoid arthritis
     Dosage: 5 MILLIGRAM, BID
  339. XELJANZ [Concomitant]
     Active Substance: TOFACITINIB CITRATE
     Dosage: 5 MILLIGRAM, QD
  340. XELJANZ [Concomitant]
     Active Substance: TOFACITINIB CITRATE
     Dosage: 5 MILLIGRAM, BID
  341. XELJANZ [Concomitant]
     Active Substance: TOFACITINIB CITRATE
     Dosage: 5 MILLIGRAM, BID
  342. XELJANZ [Concomitant]
     Active Substance: TOFACITINIB CITRATE
     Dosage: 5 MILLIGRAM, BID
  343. XELJANZ [Concomitant]
     Active Substance: TOFACITINIB CITRATE
     Dosage: 5 MILLIGRAM, BID
  344. XELJANZ [Concomitant]
     Active Substance: TOFACITINIB CITRATE
     Dosage: 5 MILLIGRAM, BID
  345. XELJANZ [Concomitant]
     Active Substance: TOFACITINIB CITRATE
  346. QUETIAPINE [Concomitant]
     Active Substance: QUETIAPINE
     Indication: Product used for unknown indication
  347. PANTOPRAZOLE SODIUM [Concomitant]
     Active Substance: PANTOPRAZOLE SODIUM
     Indication: Product used for unknown indication
  348. PANTOPRAZOLE SODIUM [Concomitant]
     Active Substance: PANTOPRAZOLE SODIUM
  349. CALCIUM GLUCONATE [Concomitant]
     Active Substance: CALCIUM GLUCONATE
     Indication: Product used for unknown indication
  350. CAFFEINE CITRATE [Concomitant]
     Active Substance: CAFFEINE CITRATE
     Indication: Product used for unknown indication
  351. IBUPROFEN [Concomitant]
     Active Substance: IBUPROFEN
     Indication: Product used for unknown indication
  352. RAMIPRIL [Concomitant]
     Active Substance: RAMIPRIL
     Indication: Product used for unknown indication
  353. RAMIPRIL [Concomitant]
     Active Substance: RAMIPRIL
  354. LISINOPRIL [Concomitant]
     Active Substance: LISINOPRIL
     Indication: Product used for unknown indication

REACTIONS (81)
  - Abdominal discomfort [Fatal]
  - Anti-cyclic citrullinated peptide antibody [Fatal]
  - Anti-cyclic citrullinated peptide antibody positive [Fatal]
  - Arthralgia [Fatal]
  - Arthritis [Fatal]
  - Arthropathy [Fatal]
  - Asthma [Fatal]
  - Bone erosion [Fatal]
  - C-reactive protein increased [Fatal]
  - Condition aggravated [Fatal]
  - Crohn^s disease [Fatal]
  - Decreased appetite [Fatal]
  - Diarrhoea [Fatal]
  - Duodenal ulcer perforation [Fatal]
  - Exostosis [Fatal]
  - Fatigue [Fatal]
  - Fibromyalgia [Fatal]
  - Foot deformity [Fatal]
  - Hand deformity [Fatal]
  - Hypoaesthesia [Fatal]
  - Joint dislocation [Fatal]
  - Joint stiffness [Fatal]
  - Joint swelling [Fatal]
  - Lupus vulgaris [Fatal]
  - Lupus-like syndrome [Fatal]
  - Malaise [Fatal]
  - Mobility decreased [Fatal]
  - Musculoskeletal stiffness [Fatal]
  - Nausea [Fatal]
  - Oedema peripheral [Fatal]
  - Off label use [Unknown]
  - Osteoarthritis [Fatal]
  - Pain [Fatal]
  - Pain in extremity [Fatal]
  - Pemphigus [Fatal]
  - Pericarditis [Fatal]
  - Psoriatic arthropathy [Fatal]
  - Rheumatoid arthritis [Fatal]
  - Rheumatoid factor positive [Fatal]
  - Swelling [Fatal]
  - Swollen joint count increased [Fatal]
  - Synovitis [Fatal]
  - Systemic lupus erythematosus [Fatal]
  - Tachycardia [Fatal]
  - Upper respiratory tract infection [Fatal]
  - Vomiting [Fatal]
  - Alopecia [Fatal]
  - Adverse drug reaction [Fatal]
  - Contraindicated product administered [Unknown]
  - Discomfort [Fatal]
  - Dizziness [Fatal]
  - Drug hypersensitivity [Fatal]
  - Drug ineffective [Fatal]
  - Drug intolerance [Fatal]
  - Ear infection [Fatal]
  - Exposure during pregnancy [Unknown]
  - General physical health deterioration [Fatal]
  - Glossodynia [Fatal]
  - Headache [Fatal]
  - Hepatic cirrhosis [Fatal]
  - Hepatic enzyme increased [Fatal]
  - Hypersensitivity [Fatal]
  - Infection [Fatal]
  - Intentional product use issue [Not Recovered/Not Resolved]
  - Infusion related reaction [Fatal]
  - Incorrect route of product administration [Unknown]
  - Laryngitis [Fatal]
  - Liver injury [Not Recovered/Not Resolved]
  - Osteoporosis [Fatal]
  - Pneumonia [Fatal]
  - Product use issue [Unknown]
  - Product use in unapproved indication [Fatal]
  - Rash [Fatal]
  - Red blood cell sedimentation rate increased [Fatal]
  - Retinitis [Fatal]
  - Treatment failure [Fatal]
  - Therapeutic product effect decreased [Fatal]
  - Therapeutic product effect incomplete [Fatal]
  - Visual impairment [Fatal]
  - Wound [Fatal]
  - Maternal exposure during pregnancy [Unknown]
